FAERS Safety Report 20574973 (Version 4)
Quarter: 2023Q2

REPORT INFORMATION
  Report Type: Spontaneous
  Country: US (occurrence: US)
  Receive Date: 20220310
  Receipt Date: 20230608
  Transmission Date: 20230722
  Serious: No
  Sender: FDA-Public Use
  Company Number: US-BAXTER-2022BAX004537

PATIENT
  Age: 69 Year
  Sex: Female

DRUGS (7)
  1. EXTRANEAL [Suspect]
     Active Substance: CALCIUM CHLORIDE\ICODEXTRIN\MAGNESIUM CHLORIDE\SODIUM CHLORIDE\SODIUM LACTATE
     Indication: Peritoneal dialysis
     Dosage: UNK
     Route: 033
     Dates: start: 20220217, end: 20220227
  2. DIANEAL [Suspect]
     Active Substance: CALCIUM CHLORIDE\DEXTROSE\MAGNESIUM CHLORIDE\SODIUM CHLORIDE\SODIUM LACTATE
     Indication: Peritoneal dialysis
     Dosage: UNK
     Route: 033
     Dates: start: 201608
  3. DIANEAL [Suspect]
     Active Substance: CALCIUM CHLORIDE\DEXTROSE\MAGNESIUM CHLORIDE\SODIUM CHLORIDE\SODIUM LACTATE
     Indication: Peritoneal dialysis
     Dosage: UNK
     Route: 033
     Dates: start: 201608
  4. DIANEAL [Suspect]
     Active Substance: CALCIUM CHLORIDE\DEXTROSE\MAGNESIUM CHLORIDE\SODIUM CHLORIDE\SODIUM LACTATE
     Dosage: UNK
     Route: 033
  5. ATORVASTATIN [Concomitant]
     Active Substance: ATORVASTATIN
     Dosage: 40 MG, 1 TABLET EVERY DAY
     Route: 048
  6. CARVEDILOL [Concomitant]
     Active Substance: CARVEDILOL
     Dosage: 12.5 MG, TWICE A DAY
     Route: 048
  7. LOSARTAN [Concomitant]
     Active Substance: LOSARTAN
     Dosage: 50 MG, 1 TABLET EVERY DAY
     Route: 048

REACTIONS (18)
  - Nail growth abnormal [Unknown]
  - Eye swelling [Unknown]
  - Product administration error [Unknown]
  - Blood phosphorus increased [Unknown]
  - Nail disorder [Unknown]
  - Drug hypersensitivity [Recovering/Resolving]
  - Skin exfoliation [Unknown]
  - Drug eruption [Unknown]
  - Catheter site pruritus [Recovering/Resolving]
  - Catheter site irritation [Recovering/Resolving]
  - Catheter site erythema [Recovering/Resolving]
  - Rash pruritic [Recovering/Resolving]
  - Rash erythematous [Recovering/Resolving]
  - Rash [Recovering/Resolving]
  - Urticaria [Unknown]
  - Skin swelling [Unknown]
  - Hypervolaemia [Unknown]
  - Swelling [Unknown]

NARRATIVE: CASE EVENT DATE: 20220207
